FAERS Safety Report 6550872-X (Version None)
Quarter: 2010Q1

REPORT INFORMATION
  Report Type: 
  Country: None (occurrence: None)
  Receive Date: 20100125
  Receipt Date: 20100118
  Transmission Date: 20100710
  Serious: Yes (Death, Hospitalization, Other)
  Sender: FDA-Public Use
  Company Number: SA-ROXANE LABORATORIES, INC.-2010-RO-00047RO

PATIENT
  Age: 52 Year
  Sex: Male

DRUGS (23)
  1. METHOTREXATE [Suspect]
     Indication: PSORIASIS
     Route: 048
     Dates: start: 20030701
  2. METHOTREXATE [Suspect]
     Route: 037
  3. PREDNISONE [Suspect]
     Indication: ACUTE LYMPHOCYTIC LEUKAEMIA
  4. CYCLOPHOSPHAMIDE [Suspect]
     Indication: STEM CELL TRANSPLANT
  5. DEXAMETHASONE [Suspect]
     Indication: PROPHYLACTIC CHEMOTHERAPY
     Dates: end: 20060301
  6. DEXAMETHASONE [Suspect]
     Indication: PALLIATIVE CARE
  7. MERCAPTOPURINE [Suspect]
     Indication: PROPHYLACTIC CHEMOTHERAPY
     Dates: end: 20060301
  8. MERCAPTOPURINE [Suspect]
     Indication: PALLIATIVE CARE
  9. DAUNORUBICIN HCL [Suspect]
     Indication: ACUTE LYMPHOCYTIC LEUKAEMIA
  10. CYTOSINE ARABINOSIDE [Suspect]
     Indication: ACUTE LYMPHOCYTIC LEUKAEMIA
  11. CYTOSINE ARABINOSIDE [Suspect]
     Indication: CHEMOTHERAPY
  12. VINCRISTINE [Suspect]
     Indication: ACUTE LYMPHOCYTIC LEUKAEMIA
  13. VINCRISTINE [Suspect]
     Indication: PROPHYLACTIC CHEMOTHERAPY
  14. VINCRISTINE [Suspect]
     Indication: PALLIATIVE CARE
  15. L-ASPARAGINASE [Suspect]
     Indication: ACUTE LYMPHOCYTIC LEUKAEMIA
  16. HYDROCORTISONE [Suspect]
     Indication: CHEMOTHERAPY
  17. CEFEPIME [Suspect]
     Indication: FEBRILE NEUTROPENIA
  18. GENTAMICIN [Suspect]
     Indication: FEBRILE NEUTROPENIA
  19. GANCICLOVIR [Suspect]
     Indication: CYTOMEGALOVIRUS INFECTION
     Route: 042
  20. BACTRIM [Suspect]
  21. RANITIDINE [Suspect]
  22. MAGNESIUM OXIDE [Suspect]
  23. IMATINIB [Suspect]

REACTIONS (8)
  - ACUTE LYMPHOCYTIC LEUKAEMIA RECURRENT [None]
  - B PRECURSOR TYPE ACUTE LEUKAEMIA [None]
  - CYTOMEGALOVIRUS INFECTION [None]
  - EPISTAXIS [None]
  - FEBRILE NEUTROPENIA [None]
  - INFECTION [None]
  - LEUKAEMIA RECURRENT [None]
  - PANCYTOPENIA [None]
